FAERS Safety Report 4526910-2 (Version None)
Quarter: 2004Q4

REPORT INFORMATION
  Report Type: 
  Country: None (occurrence: None)
  Receive Date: 20041213
  Receipt Date: 20041130
  Transmission Date: 20050328
  Serious: Yes (Hospitalization)
  Sender: FDA-Public Use
  Company Number: 2004AP05492

PATIENT
  Age: 79 Year
  Sex: Male

DRUGS (14)
  1. ZOLADEX [Suspect]
     Indication: PROSTATE CANCER
     Dosage: 10.8 MG Q3MO SQ
     Route: 058
     Dates: start: 20040917
  2. CASODEX [Suspect]
     Indication: PROSTATE CANCER
     Dosage: 80 MG DAILY PO
     Route: 048
     Dates: start: 20040901, end: 20040927
  3. PERSANTIN [Concomitant]
  4. PANALDINE [Concomitant]
  5. SERMION [Concomitant]
  6. ISOSORBIDE MONONITRATE [Concomitant]
  7. ADALAT [Concomitant]
  8. THYRADIN S [Concomitant]
  9. CYANOCOBALAMIN [Concomitant]
  10. AMARYL [Concomitant]
  11. GLUCOBAY [Concomitant]
  12. WARFARIN SODIUM [Concomitant]
  13. BASEN [Concomitant]
  14. FASTIC [Concomitant]

REACTIONS (4)
  - BACTERIAL INFECTION [None]
  - HAEMOPTYSIS [None]
  - INTERSTITIAL LUNG DISEASE [None]
  - MELAENA [None]
